FAERS Safety Report 8599458-6 (Version None)
Quarter: 2012Q3

REPORT INFORMATION
  Report Type: 
  Country: None (occurrence: None)
  Receive Date: 20120816
  Receipt Date: 20120711
  Transmission Date: 20120928
  Serious: Yes (Other)
  Sender: FDA-Public Use
  Company Number: US-ENDO PHARMACEUTICALS INC.-OPCR20121608

PATIENT
  Sex: Female

DRUGS (4)
  1. OPANA ER [Concomitant]
     Indication: BACK PAIN
     Route: 048
     Dates: start: 20100101, end: 20120101
  2. OPANA ER [Suspect]
     Indication: BACK PAIN
     Route: 048
     Dates: start: 20120101
  3. OPANA ER [Suspect]
     Indication: PAIN IN EXTREMITY
  4. OPANA ER [Concomitant]
     Indication: PAIN IN EXTREMITY

REACTIONS (3)
  - DRUG INEFFECTIVE [None]
  - WRONG TECHNIQUE IN DRUG USAGE PROCESS [None]
  - WITHDRAWAL SYNDROME [None]
